FAERS Safety Report 24576505 (Version 1)
Quarter: 2024Q4

REPORT INFORMATION
  Report Type: Spontaneous
  Country: US (occurrence: US)
  Receive Date: 20241104
  Receipt Date: 20241104
  Transmission Date: 20250114
  Serious: Yes (Hospitalization)
  Sender: PFIZER
  Company Number: US-PFIZER INC-202400291090

PATIENT
  Age: 68 Year
  Sex: Female
  Weight: 56.7 kg

DRUGS (4)
  1. IRINOTECAN HYDROCHLORIDE [Suspect]
     Active Substance: IRINOTECAN HYDROCHLORIDE
     Indication: Adenocarcinoma pancreas
     Dosage: Q2W (ONCE EVERY 2 WEEKS)
     Dates: start: 20240126
  2. OXALIPLATIN [Suspect]
     Active Substance: OXALIPLATIN
     Indication: Adenocarcinoma pancreas
     Dosage: Q2W (ONCE EVERY 2 WEEKS)
     Dates: start: 20240126
  3. FLUOROURACIL [Suspect]
     Active Substance: FLUOROURACIL
     Indication: Adenocarcinoma pancreas
     Dosage: Q2W (ONCE EVERY 2 WEEKS)
     Dates: start: 20240126
  4. LEUCOVORIN [Suspect]
     Active Substance: LEUCOVORIN\LEUCOVORIN CALCIUM
     Indication: Adenocarcinoma pancreas
     Dosage: Q2W (ONCE EVERY 2 WEEKS)
     Dates: start: 20240126

REACTIONS (3)
  - Haematochezia [Unknown]
  - Upper gastrointestinal haemorrhage [Unknown]
  - Off label use [Unknown]
